FAERS Safety Report 9469507 (Version 1)
Quarter: 2013Q3

REPORT INFORMATION
  Report Type: Spontaneous
  Country: US (occurrence: US)
  Receive Date: 20130822
  Receipt Date: 20130822
  Transmission Date: 20140515
  Serious: No
  Sender: FDA-Public Use
  Company Number: US-BIOGENIDEC-2013BI077649

PATIENT
  Age: 67 Year
  Sex: Male

DRUGS (1)
  1. AVONEX [Suspect]
     Indication: MULTIPLE SCLEROSIS
     Route: 030
     Dates: start: 20130816

REACTIONS (4)
  - Fall [Recovered/Resolved]
  - Urinary incontinence [Recovered/Resolved]
  - Mobility decreased [Not Recovered/Not Resolved]
  - Chills [Recovered/Resolved]
